FAERS Safety Report 14307510 (Version 2)
Quarter: 2017Q4

REPORT INFORMATION
  Report Type: Spontaneous
  Country: US (occurrence: US)
  Receive Date: 20171220
  Receipt Date: 20171221
  Transmission Date: 20180321
  Serious: No
  Sender: FDA-Public Use
  Company Number: US-PFIZER INC-2017540605

PATIENT
  Age: 91 Year
  Sex: Male
  Weight: 74 kg

DRUGS (1)
  1. ATROPINE SULFATE/DIPHENOXYLATE HYDROCHLORIDE [Suspect]
     Active Substance: ATROPINE SULFATE\DIPHENOXYLATE HYDROCHLORIDE
     Indication: DIARRHOEA
     Dosage: UNK UNK, AS NEEDED [DIPHENOXYLATE: 2.5 MG; ATROPINE: 0.25MG] [THREE TIMES A DAY]
     Route: 048
     Dates: start: 201711

REACTIONS (1)
  - Drug ineffective [Unknown]
